FAERS Safety Report 18557640 (Version 1)
Quarter: 2020Q4

REPORT INFORMATION
  Report Type: Spontaneous
  Country: US (occurrence: US)
  Receive Date: 20201130
  Receipt Date: 20201130
  Transmission Date: 20210114
  Serious: No
  Sender: FDA-Public Use
  Company Number: US-DRREDDYS-USA/USA/20/0128958

PATIENT
  Age: 82 Year
  Sex: Male
  Weight: 75.6 kg

DRUGS (4)
  1. TIMOLOL. [Concomitant]
     Active Substance: TIMOLOL
     Indication: PRODUCT USED FOR UNKNOWN INDICATION
  2. GUAIFENESIN AND PSEUDOEPHEDRINE HYDROCHLORIDE EXTENDED-RELEASE TABLETS [Suspect]
     Active Substance: GUAIFENESIN\PSEUDOEPHEDRINE HYDROCHLORIDE
     Indication: COVID-19
     Dosage: 2 TABLETS TWICE DAILY WITH WATER
     Dates: start: 20201106, end: 20201107
  3. ATORVASTATIN [Concomitant]
     Active Substance: ATORVASTATIN
     Indication: PRODUCT USED FOR UNKNOWN INDICATION
  4. VITAMINS [Concomitant]
     Active Substance: VITAMINS
     Indication: PRODUCT USED FOR UNKNOWN INDICATION

REACTIONS (5)
  - Product use in unapproved indication [Unknown]
  - Product quality issue [Unknown]
  - Insomnia [Unknown]
  - Drug ineffective [Unknown]
  - Nocturia [Unknown]
